FAERS Safety Report 10066215 (Version 2)
Quarter: 2014Q2

REPORT INFORMATION
  Report Type: Spontaneous
  Country: US (occurrence: US)
  Receive Date: 20140408
  Receipt Date: 20140520
  Transmission Date: 20141212
  Serious: No
  Sender: FDA-Public Use
  Company Number: US-PFIZER INC-2014095427

PATIENT
  Age: 74 Year
  Sex: Male
  Weight: 91 kg

DRUGS (2)
  1. ADVIL [Suspect]
     Indication: MYALGIA
     Dosage: 200 MG, AS NEEDED
  2. ASPIRIN [Concomitant]
     Indication: THROMBOSIS
     Dosage: 80 MG, DAILY

REACTIONS (3)
  - Poor quality drug administered [Unknown]
  - Thermal burn [Recovering/Resolving]
  - Product physical issue [Unknown]
